FAERS Safety Report 17531685 (Version 2)
Quarter: 2021Q4

REPORT INFORMATION
  Report Type: Spontaneous
  Country: ES (occurrence: ES)
  Receive Date: 20200312
  Receipt Date: 20211021
  Transmission Date: 20220303
  Serious: Yes (Life-Threatening, Hospitalization)
  Sender: FDA-Public Use
  Company Number: 2020SE32862

PATIENT
  Age: 69 Year
  Sex: Male
  Weight: 83.8 kg

DRUGS (20)
  1. SEROQUEL [Suspect]
     Active Substance: QUETIAPINE FUMARATE
     Indication: Agitation
     Route: 048
     Dates: start: 20190211
  2. SEROQUEL [Suspect]
     Active Substance: QUETIAPINE FUMARATE
     Indication: Delirium
     Route: 048
     Dates: start: 20190211
  3. SEROQUEL [Suspect]
     Active Substance: QUETIAPINE FUMARATE
     Indication: Agitation
     Dosage: 25.0MG ONCE/SINGLE ADMINISTRATION
     Route: 048
  4. SEROQUEL [Suspect]
     Active Substance: QUETIAPINE FUMARATE
     Indication: Delirium
     Dosage: 25.0MG ONCE/SINGLE ADMINISTRATION
     Route: 048
  5. CINITAPRIDE [Concomitant]
     Active Substance: CINITAPRIDE
     Route: 065
  6. GENTAMICIN [Concomitant]
     Active Substance: GENTAMICIN
     Indication: Respiratory tract infection
     Dosage: NEBULISED, 200 MG EVERY 12 HOURS
     Route: 065
  7. PIPERACILLIN AND TAZOBACTAM [Concomitant]
     Active Substance: PIPERACILLIN SODIUM\TAZOBACTAM SODIUM
     Indication: Respiratory tract infection
     Dosage: 4/0.5 G IV EVERY 8 HOURS
     Route: 042
  8. AMIODARONE HYDROCHLORIDE [Concomitant]
     Active Substance: AMIODARONE HYDROCHLORIDE
     Indication: Atrial fibrillation
     Route: 048
  9. AMIODARONE HYDROCHLORIDE [Concomitant]
     Active Substance: AMIODARONE HYDROCHLORIDE
     Indication: Atrial fibrillation
     Dosage: 900.0MG ONCE/SINGLE ADMINISTRATION
     Route: 042
  10. FUROSEMIDE [Concomitant]
     Active Substance: FUROSEMIDE
  11. FUROSEMIDE [Concomitant]
     Active Substance: FUROSEMIDE
  12. PANTOPRAZOLE [Concomitant]
     Active Substance: PANTOPRAZOLE
  13. HEPARIN SODIUM [Concomitant]
     Active Substance: HEPARIN SODIUM
  14. HEPARIN SODIUM [Concomitant]
     Active Substance: HEPARIN SODIUM
  15. ATROVENT [Concomitant]
     Active Substance: IPRATROPIUM BROMIDE
  16. ASPIRIN [Concomitant]
     Active Substance: ASPIRIN
  17. ENALAPRIL [Concomitant]
     Active Substance: ENALAPRIL
  18. ENALAPRIL [Concomitant]
     Active Substance: ENALAPRIL
     Route: 048
  19. ATORVASTATIN [Concomitant]
     Active Substance: ATORVASTATIN
     Route: 048
  20. CEFAZOLIN SODIUM [Concomitant]
     Active Substance: CEFAZOLIN SODIUM
     Route: 065

REACTIONS (4)
  - Drug reaction with eosinophilia and systemic symptoms [Recovered/Resolved]
  - Tubulointerstitial nephritis [Not Recovered/Not Resolved]
  - Chronic kidney disease [Not Recovered/Not Resolved]
  - Off label use [Unknown]

NARRATIVE: CASE EVENT DATE: 20190211
